FAERS Safety Report 9893917 (Version 3)
Quarter: 2014Q1

REPORT INFORMATION
  Report Type: Spontaneous
  Country: JP (occurrence: JP)
  Receive Date: 20140213
  Receipt Date: 20140320
  Transmission Date: 20141002
  Serious: Yes (Hospitalization)
  Sender: FDA-Public Use
  Company Number: JP-ROCHE-1326379

PATIENT
  Age: 60 Year
  Sex: Female

DRUGS (9)
  1. ACTEMRA [Suspect]
     Indication: RHEUMATOID ARTHRITIS
     Route: 058
     Dates: start: 20130828, end: 20131205
  2. METHOTREXATE [Suspect]
     Indication: RHEUMATOID ARTHRITIS
     Route: 048
     Dates: start: 2007, end: 20131225
  3. PREDNISOLONE [Concomitant]
     Indication: RHEUMATOID ARTHRITIS
     Route: 048
     Dates: start: 2007
  4. RESPLEN [Concomitant]
     Dosage: AFTER EVERY MEAL
     Route: 048
  5. MUCODYNE [Concomitant]
     Dosage: AFTER EVERY MEAL
     Route: 048
  6. PYDOXAL [Concomitant]
     Dosage: AFTER THE BREAKFAST
     Route: 048
  7. ISCOTIN [Concomitant]
     Dosage: AFTER THE BREAKFAST
     Route: 048
  8. FOLIAMIN [Concomitant]
     Dosage: AFTER THE BREAKFAST: TAKING ON FRIDAY.
     Route: 048
  9. RECALBON [Concomitant]
     Dosage: WHEN YOU GET UP: ONCE EVERY FOUR WEEKS
     Route: 048

REACTIONS (1)
  - Interstitial lung disease [Recovering/Resolving]
